FAERS Safety Report 5027790-1 (Version None)
Quarter: 2006Q2

REPORT INFORMATION
  Report Type: 
  Country: None (occurrence: None)
  Receive Date: 20060613
  Receipt Date: 20060613
  Transmission Date: 20061013
  Serious: No
  Sender: FDA-Public Use
  Company Number: None

PATIENT
  Age: 60 Year
  Sex: Male

DRUGS (1)
  1. SANDOGLOBULIN [Suspect]

REACTIONS (2)
  - OLIGURIA [None]
  - RENAL TUBULAR NECROSIS [None]
